FAERS Safety Report 5870564-X (Version None)
Quarter: 2008Q3

REPORT INFORMATION
  Report Type: 
  Country: None (occurrence: None)
  Receive Date: 20080829
  Receipt Date: 20080820
  Transmission Date: 20090109
  Serious: Yes (Hospitalization)
  Sender: FDA-Public Use
  Company Number: 2008BI021334

PATIENT
  Age: 36 Year
  Sex: Male
  Weight: 70.7611 kg

DRUGS (2)
  1. AVONEX [Suspect]
     Indication: MULTIPLE SCLEROSIS
     Dosage: 30 UG; QW; IM, 30 UG, QW, IM
     Route: 030
     Dates: start: 20010101, end: 20060101
  2. AVONEX [Suspect]
     Indication: MULTIPLE SCLEROSIS
     Dosage: 30 UG; QW; IM, 30 UG, QW, IM
     Route: 030
     Dates: start: 20060501, end: 20080401

REACTIONS (3)
  - CONVULSION [None]
  - SKIN ULCER [None]
  - TOE AMPUTATION [None]
